FAERS Safety Report 4896434-1 (Version None)
Quarter: 2006Q1

REPORT INFORMATION
  Report Type: 
  Country: None (occurrence: None)
  Receive Date: 20060126
  Receipt Date: 20060116
  Transmission Date: 20060701
  Serious: Yes (Death, Life-Threatening)
  Sender: FDA-Public Use
  Company Number: 2006007908

PATIENT
  Age: 80 Year
  Sex: Male

DRUGS (1)
  1. SULPERAZON (SULBACTAM, CEFOPERAZONE) [Suspect]
     Indication: UPPER RESPIRATORY TRACT INFECTION
     Dosage: DAILY, INTRAVENOUS
     Route: 042
     Dates: start: 20051224, end: 20051224

REACTIONS (5)
  - CHEST PAIN [None]
  - DIARRHOEA [None]
  - LEFT VENTRICULAR FAILURE [None]
  - RESPIRATORY FAILURE [None]
  - VOMITING [None]
